APPROVED DRUG PRODUCT: TIZANIDINE HYDROCHLORIDE
Active Ingredient: TIZANIDINE HYDROCHLORIDE
Strength: EQ 6MG BASE
Dosage Form/Route: CAPSULE;ORAL
Application: A207199 | Product #003
Applicant: PH HEALTH LTD
Approved: Mar 14, 2017 | RLD: No | RS: No | Type: DISCN